FAERS Safety Report 5166460-6 (Version None)
Quarter: 2006Q4

REPORT INFORMATION
  Report Type: 
  Country: None (occurrence: None)
  Receive Date: 20061129
  Receipt Date: 20061116
  Transmission Date: 20070319
  Serious: Yes (Hospitalization)
  Sender: FDA-Public Use
  Company Number: 2006103427

PATIENT
  Age: 52 Year
  Sex: Female
  Weight: 67.7 kg

DRUGS (30)
  1. SUTENT [Suspect]
     Indication: GASTROINTESTINAL STROMAL TUMOUR
     Dosage: 50 MG (50 MG, 1 IN 1 D), ORAL
     Route: 048
     Dates: start: 20051110, end: 20060816
  2. ESOMEPRAZOLE (ESOMEPRAZOLE) [Concomitant]
  3. DIHYDROCODEINE COMPOUND [Concomitant]
  4. GANATON (ITOPRIDE HYDROCHLORIDE) [Concomitant]
  5. POTASSIUM (POTASSIUM) [Concomitant]
  6. METOCLOPRAMIDE HYDROCHLORIDE [Concomitant]
  7. DICLOFENAC SODIUM [Concomitant]
  8. SIMETICONE (SIMETICONE) [Concomitant]
  9. FUROSEMIDE [Concomitant]
  10. SPIRONOLACTONE [Concomitant]
  11. MICARDIS [Concomitant]
  12. LASIX [Concomitant]
  13. SODIUM CHLORIDE 0.9% [Concomitant]
  14. GLUCOSE (GLUCOSE) [Concomitant]
  15. POTASSIUM CHLORIDE [Concomitant]
  16. LACTULOSE [Concomitant]
  17. POTASSIUM CHLORIDE [Concomitant]
  18. LACTULOSE [Concomitant]
  19. DIMENHYDRINATE [Concomitant]
  20. HYDROCORTISONE [Concomitant]
  21. NOVALGIN (METAMIZOLE SODIUM) [Concomitant]
  22. NOCTAMID (LORMETAZEPAM) [Concomitant]
  23. ENOXAPARIN SODIUM [Concomitant]
  24. MORPHINE SULFATE [Concomitant]
  25. DURAGESIC-100 [Concomitant]
  26. FENISTIL (DIMETINDENE MALEATE) [Concomitant]
  27. NOVALGIN (METAMIZOLE SODIUM) [Concomitant]
  28. MORPHINE SULFATE [Concomitant]
  29. ALDACTONE [Concomitant]
  30. MORPHINE [Concomitant]

REACTIONS (3)
  - DEPRESSION [None]
  - GENERAL PHYSICAL HEALTH DETERIORATION [None]
  - HYPOTHYROIDISM [None]
